FAERS Safety Report 6984621 (Version 5)
Quarter: 2013Q2

REPORT INFORMATION
  Report Type: Spontaneous
  Country: GB (occurrence: GB)
  Receive Date: 20090501
  Receipt Date: 20130510
  Transmission Date: 20140414
  Serious: Yes (Hospitalization, Other)
  Sender: FDA-Public Use
  Company Number: GB-ALEXION-A200800260

PATIENT
  Age: 20 Year
  Sex: Male

DRUGS (7)
  1. SOLIRIS [Suspect]
     Indication: PAROXYSMAL NOCTURNAL HAEMOGLOBINURIA
     Dosage: 600 MG, QW
     Route: 042
     Dates: start: 20080812
  2. SOLIRIS [Suspect]
     Dosage: 900 MG, SINGLE
     Route: 042
  3. SOLIRIS [Suspect]
     Dosage: 900 MG, Q2W
     Route: 042
  4. HEPARIN [Concomitant]
  5. FOLIC ACID [Concomitant]
  6. OXYMETHOLONE [Concomitant]
  7. WARFARIN [Concomitant]
     Indication: THROMBOSIS

REACTIONS (4)
  - Meningitis meningococcal [Recovering/Resolving]
  - Meningococcal sepsis [Recovering/Resolving]
  - Hypertension [Recovering/Resolving]
  - Haemoglobin decreased [Recovering/Resolving]
